FAERS Safety Report 10403828 (Version 1)
Quarter: 2014Q3

REPORT INFORMATION
  Report Type: Spontaneous
  Country: US (occurrence: US)
  Receive Date: 20140822
  Receipt Date: 20140822
  Transmission Date: 20150326
  Serious: No
  Sender: FDA-Public Use
  Company Number: US-NOVEN-14US009703

PATIENT
  Age: 56 Year
  Sex: Female

DRUGS (5)
  1. MINIVELLE [Suspect]
     Active Substance: ESTRADIOL
     Indication: HOT FLUSH
     Dosage: 0.075 MG, UNK
     Route: 062
     Dates: start: 20140516
  2. MINIVELLE [Suspect]
     Active Substance: ESTRADIOL
     Dosage: 0.0375 MG/DAY, TWICE WEEKLY
     Route: 062
     Dates: start: 201403, end: 201403
  3. ESTROVEN [Concomitant]
     Indication: HOT FLUSH
     Dosage: 2 CAPSULES/DAY
     Route: 048
     Dates: start: 201405
  4. MINIVELLE [Suspect]
     Active Substance: ESTRADIOL
     Indication: NIGHT SWEATS
     Dosage: 0.05 MG/DAY, TWICE WEEKLY
     Route: 062
     Dates: start: 2014, end: 201405
  5. ESTROVEN [Concomitant]
     Indication: WEIGHT CONTROL

REACTIONS (5)
  - Drug ineffective [Not Recovered/Not Resolved]
  - Drug dose omission [Not Recovered/Not Resolved]
  - Product quality issue [Not Recovered/Not Resolved]
  - Weight increased [Not Recovered/Not Resolved]
  - Hypertrichosis [Not Recovered/Not Resolved]

NARRATIVE: CASE EVENT DATE: 2014
